FAERS Safety Report 5811714-0 (Version None)
Quarter: 2008Q3

REPORT INFORMATION
  Report Type: 
  Country: None (occurrence: None)
  Receive Date: 20080715
  Receipt Date: 20080715
  Transmission Date: 20090109
  Serious: Yes (Life-Threatening)
  Sender: FDA-Public Use
  Company Number: None

PATIENT
  Age: 87 Year
  Sex: Male

DRUGS (2)
  1. ENOXAPARIN SODIUM [Suspect]
     Indication: ACUTE MYOCARDIAL INFARCTION
     Dosage: 60 MG BID SQ
     Route: 058
     Dates: start: 20080427, end: 20080427
  2. ASPIRIN [Suspect]
     Indication: PROPHYLAXIS
     Dates: end: 20080427

REACTIONS (5)
  - BLEEDING TIME PROLONGED [None]
  - FALL [None]
  - HAEMORRHAGE [None]
  - SKIN LACERATION [None]
  - SUBDURAL HAEMORRHAGE [None]
